FAERS Safety Report 7150318-7 (Version None)
Quarter: 2010Q4

REPORT INFORMATION
  Report Type: 
  Country: None (occurrence: None)
  Receive Date: 20101210
  Receipt Date: 20101201
  Transmission Date: 20110411
  Serious: Yes (Other)
  Sender: FDA-Public Use
  Company Number: LB-NOVOPROD-319389

PATIENT
  Age: 52 Year
  Sex: Male
  Weight: 99 kg

DRUGS (4)
  1. VICTOZA [Suspect]
     Indication: TYPE 2 DIABETES MELLITUS
     Dosage: 0.6 X 3 = 1.8 MG
     Dates: start: 20101102, end: 20101109
  2. CO-APROVEL [Concomitant]
     Dosage: 300 UNK, UNK
     Route: 048
     Dates: start: 20080101
  3. GLUCOPHAGE [Concomitant]
     Dosage: 750 XR
     Route: 048
     Dates: start: 20090101
  4. NEBIVOLOL HCL [Concomitant]
     Dosage: 5 UNK, UNK
     Route: 048
     Dates: start: 20090101

REACTIONS (1)
  - NERVOUSNESS [None]
